FAERS Safety Report 7509941-X (Version None)
Quarter: 2011Q2

REPORT INFORMATION
  Report Type: 
  Country: None (occurrence: None)
  Receive Date: 20110527
  Receipt Date: 20101111
  Transmission Date: 20111010
  Serious: Yes (Death, Hospitalization, Other)
  Sender: FDA-Public Use
  Company Number: PHHY2010US73655

PATIENT
  Sex: Male

DRUGS (9)
  1. AMARYL [Concomitant]
     Dosage: 1 DF, QD
  2. LASIX [Concomitant]
     Dosage: 1 DF, (1,2 TIMES DAILY)
     Route: 048
  3. POTASSIUM CHLORIDE [Concomitant]
     Indication: THROMBOCYTOPENIA
     Dosage: 20 MEQ, BID
     Route: 048
  4. CIPROFLOXACIN [Concomitant]
     Dosage: 1 DF, (1, 2 TIMES DAILY)
     Route: 048
  5. EXJADE [Suspect]
     Indication: IRON OVERLOAD
     Dosage: 1000 MG, QD
     Route: 048
     Dates: start: 20100917
  6. LISINOPRIL [Concomitant]
     Indication: HYPERTENSION
     Dosage: 20 MG, DAILY
     Route: 048
  7. JANUVIA [Concomitant]
     Indication: APLASTIC ANAEMIA
     Dosage: 50 MG, DAILY
     Route: 048
  8. ACYCLOVIR [Concomitant]
     Dosage: 1 DF, QD
     Route: 048
  9. DIFLUCAN [Concomitant]
     Dosage: 1 DF, QD
     Route: 048

REACTIONS (14)
  - DEATH [None]
  - ANAEMIA [None]
  - DYSPNOEA [None]
  - PULSE ABSENT [None]
  - RENAL FAILURE CHRONIC [None]
  - PAIN [None]
  - BLISTER [None]
  - DIABETES MELLITUS INADEQUATE CONTROL [None]
  - DEPRESSED LEVEL OF CONSCIOUSNESS [None]
  - FATIGUE [None]
  - JOINT SWELLING [None]
  - THROMBOCYTOPENIA [None]
  - MUSCULOSKELETAL STIFFNESS [None]
  - OEDEMA [None]
